FAERS Safety Report 18683857 (Version 1)
Quarter: 2020Q4

REPORT INFORMATION
  Report Type: Spontaneous
  Country: FR (occurrence: FR)
  Receive Date: 20201230
  Receipt Date: 20201230
  Transmission Date: 20210114
  Serious: Yes (Hospitalization)
  Sender: FDA-Public Use
  Company Number: FR-MYLANLABS-2020M1106086

PATIENT
  Age: 76 Year
  Sex: Male

DRUGS (16)
  1. MYCOPHENOLATE MOFETIL MYLAN [Suspect]
     Active Substance: MYCOPHENOLATE MOFETIL
     Indication: IMMUNOSUPPRESSANT DRUG THERAPY
     Dosage: UNK
     Route: 065
  2. MARIBAVIR [Suspect]
     Active Substance: MARIBAVIR
     Indication: CYTOMEGALOVIRUS CHORIORETINITIS
     Dosage: 500 MILLIGRAM, BID
  3. MYCOPHENOLATE MOFETIL MYLAN [Suspect]
     Active Substance: MYCOPHENOLATE MOFETIL
     Dosage: INITIAL DOSAGE NOT STATED; LATER, THE DOSAGE WAS LOWERED TO 600 MG TWICE DAILY.
     Route: 065
  4. SIROLIMUS. [Suspect]
     Active Substance: SIROLIMUS
     Indication: IMMUNOSUPPRESSANT DRUG THERAPY
     Dosage: UNK
     Route: 065
     Dates: start: 201002, end: 201202
  5. METHYLPREDNISOLONE. [Suspect]
     Active Substance: METHYLPREDNISOLONE
     Dosage: 15 MILLIGRAM, QD
     Route: 065
  6. METHYLPREDNISOLONE. [Suspect]
     Active Substance: METHYLPREDNISOLONE
     Indication: IMMUNOSUPPRESSANT DRUG THERAPY
     Dosage: UNK
     Route: 065
  7. BASILIXIMAB [Suspect]
     Active Substance: BASILIXIMAB
     Indication: IMMUNOSUPPRESSANT DRUG THERAPY
     Dosage: UNK
     Route: 065
  8. FOSCARNET [Concomitant]
     Active Substance: FOSCARNET
     Indication: CYTOMEGALOVIRUS CHORIORETINITIS
     Dosage: 6 G/ 250 ML; 0.1 ML TWICE A WEEK OVER 2 WEEKS, THEN 1 PER WEEK OVER 6 WEEKS
     Route: 047
  9. VALGANCICLOVIR. [Suspect]
     Active Substance: VALGANCICLOVIR
     Indication: PROPHYLAXIS
     Dosage: LOW-DOSE
     Route: 065
  10. VALGANCICLOVIR. [Suspect]
     Active Substance: VALGANCICLOVIR
     Dosage: 450 MILLIGRAM, QD
     Route: 065
  11. TACROLIMUS. [Suspect]
     Active Substance: TACROLIMUS
     Indication: IMMUNOSUPPRESSANT DRUG THERAPY
     Dosage: UNK
     Route: 065
  12. METHYLPREDNISOLONE. [Suspect]
     Active Substance: METHYLPREDNISOLONE
     Dosage: INITIAL DOSAGE NOT STATED. LATER, THE DOSE WAS LOWERED TO 5 MG
     Route: 065
  13. VALGANCICLOVIR. [Suspect]
     Active Substance: VALGANCICLOVIR
     Dosage: 450 MILLIGRAM, 0.5 WEEK
     Route: 065
  14. BELATACEPT [Suspect]
     Active Substance: BELATACEPT
     Indication: IMMUNOSUPPRESSANT DRUG THERAPY
     Dosage: DAY 0, DAY 15, DAY 30, THEN EVERY MONTH
     Route: 065
     Dates: start: 201202
  15. GANCICLOVIR. [Concomitant]
     Active Substance: GANCICLOVIR
     Indication: CYTOMEGALOVIRUS INFECTION REACTIVATION
     Dosage: 5 MILLIGRAM/KILOGRAM, BID, Q12H
  16. CYTOMEGALOVIRUS IMMUNE GLOBULIN [Concomitant]
     Active Substance: HUMAN CYTOMEGALOVIRUS IMMUNE GLOBULIN
     Indication: CYTOMEGALOVIRUS INFECTION REACTIVATION
     Dosage: 100 U/ML; 4 ML/KG AT J0, J4 AND J8, THEN 2 ML/KG AT J12 AND J16...
     Route: 065
     Dates: end: 201904

REACTIONS (3)
  - Cytomegalovirus chorioretinitis [Recovering/Resolving]
  - Drug resistance [Unknown]
  - Cytomegalovirus infection reactivation [Recovering/Resolving]
